FAERS Safety Report 9804661 (Version 1)
Quarter: 2014Q1

REPORT INFORMATION
  Report Type: Spontaneous
  Country: US (occurrence: US)
  Receive Date: 20140108
  Receipt Date: 20140108
  Transmission Date: 20141002
  Serious: Yes (Other)
  Sender: FDA-Public Use
  Company Number: CHPA2013US019027

PATIENT
  Age: 62 Year
  Sex: Female

DRUGS (7)
  1. IBUPROFEN [Suspect]
  2. ACETYLSALICYLIC ACID [Suspect]
  3. BENEFIBER W/ WHEAT DEXTRIN [Suspect]
     Indication: BOWEL MOVEMENT IRREGULARITY
     Dosage: 2 TSP, QD
     Route: 048
     Dates: start: 20131226, end: 20131227
  4. BENEFIBER W/ WHEAT DEXTRIN [Suspect]
     Indication: OFF LABEL USE
  5. DICYCLOMINE [Concomitant]
     Dosage: 20 MG, UNK
  6. ONDANSETRON [Concomitant]
     Dosage: 4 MG, UNK
  7. ANTACID                            /00416501/ [Concomitant]

REACTIONS (4)
  - Gastric ulcer [Not Recovered/Not Resolved]
  - Bowel movement irregularity [Recovered/Resolved]
  - Nausea [Recovered/Resolved]
  - Therapeutic response unexpected [Unknown]
